FAERS Safety Report 14741296 (Version 2)
Quarter: 2018Q4

REPORT INFORMATION
  Report Type: Report from Study
  Country: JP (occurrence: JP)
  Receive Date: 20180410
  Receipt Date: 20181220
  Transmission Date: 20190204
  Serious: Yes (Hospitalization)
  Sender: FDA-Public Use
  Company Number: JP-ACTELION-A-CH2017-151640

PATIENT
  Age: 65 Year
  Sex: Female
  Weight: 66 kg

DRUGS (26)
  1. UPTRAVI [Suspect]
     Active Substance: SELEXIPAG
     Dosage: 0.6 MG, BID
     Route: 048
     Dates: start: 20170203, end: 20170209
  2. BACTRAMIN [Concomitant]
     Active Substance: SULFAMETHOXAZOLE\TRIMETHOPRIM
     Indication: SJOGREN^S SYNDROME
     Dosage: 1 DF, QD
     Route: 048
     Dates: start: 20130412
  3. VENTAVIS [Concomitant]
     Active Substance: ILOPROST
     Dosage: 30 UNK, UNK
     Dates: start: 20180116
  4. UPTRAVI [Suspect]
     Active Substance: SELEXIPAG
     Dosage: 0.4 MG, BID
     Route: 048
     Dates: start: 20170123, end: 20170202
  5. UPTRAVI [Suspect]
     Active Substance: SELEXIPAG
     Dosage: 1.0 MG, BID
     Route: 048
     Dates: start: 20170217, end: 20170302
  6. UPTRAVI [Suspect]
     Active Substance: SELEXIPAG
     Dosage: 0.8 MG, BID
     Route: 048
     Dates: start: 20180112, end: 20180113
  7. UPTRAVI [Suspect]
     Active Substance: SELEXIPAG
     Dosage: 1.4 MG, BID
     Route: 048
     Dates: start: 20171117, end: 20171123
  8. UPTRAVI [Suspect]
     Active Substance: SELEXIPAG
     Dosage: UNK
     Route: 048
     Dates: start: 20180116, end: 20180122
  9. ADCIRCA [Concomitant]
     Active Substance: TADALAFIL
     Indication: PULMONARY ARTERIAL HYPERTENSION
     Dosage: 40 MG, QD
     Route: 048
     Dates: start: 20160219
  10. ATELEC [Concomitant]
     Active Substance: CILNIDIPINE
     Indication: HYPERTENSION
     Dosage: 10 MG, QD
     Route: 048
     Dates: start: 20110308
  11. OPSUMIT [Concomitant]
     Active Substance: MACITENTAN
     Indication: PULMONARY ARTERIAL HYPERTENSION
     Dosage: 10 MG, QD
     Route: 048
     Dates: start: 20160303
  12. NEXIUM [Concomitant]
     Active Substance: ESOMEPRAZOLE MAGNESIUM
     Indication: SJOGREN^S SYNDROME
     Dosage: 20 MG, QD
     Route: 048
     Dates: start: 20130412
  13. URINORM [Concomitant]
     Active Substance: BENZBROMARONE
     Indication: HYPERTENSION
     Dosage: 50 MG, QD
     Route: 048
     Dates: start: 20140926
  14. VENTAVIS [Concomitant]
     Active Substance: ILOPROST
     Indication: PULMONARY ARTERIAL HYPERTENSION
     Dosage: 7.5 UNK, UNK
     Dates: start: 20171228, end: 20180103
  15. UPTRAVI [Suspect]
     Active Substance: SELEXIPAG
     Dosage: 0.6 MG, BID
     Route: 048
     Dates: start: 20180114, end: 20180115
  16. UPTRAVI [Suspect]
     Active Substance: SELEXIPAG
     Indication: PULMONARY ARTERIAL HYPERTENSION
     Dosage: 0.2 MG, BID
     Route: 048
     Dates: start: 20170117, end: 20170122
  17. PREDONINE [Concomitant]
     Active Substance: PREDNISOLONE
     Indication: SJOGREN^S SYNDROME
     Dosage: 6 MG, QD
     Route: 048
     Dates: start: 20130412
  18. MEDICON [Concomitant]
     Active Substance: DEXTROMETHORPHAN HYDROBROMIDE
     Indication: SJOGREN^S SYNDROME
     Dosage: 30 MG, QD
     Route: 048
     Dates: start: 20130412
  19. VENTAVIS [Concomitant]
     Active Substance: ILOPROST
     Dosage: 15 UNK, UNK
     Dates: start: 20180104, end: 20180111
  20. UPTRAVI [Suspect]
     Active Substance: SELEXIPAG
     Dosage: 1.4 MG, BID
     Route: 048
     Dates: start: 20170310, end: 20170323
  21. VENTAVIS [Concomitant]
     Active Substance: ILOPROST
     Dosage: 25 UNK, UNK
     Dates: start: 20180114, end: 20180115
  22. UPTRAVI [Suspect]
     Active Substance: SELEXIPAG
     Dosage: 0.8 MG, BID
     Route: 048
     Dates: start: 20170210, end: 20170216
  23. UPTRAVI [Suspect]
     Active Substance: SELEXIPAG
     Dosage: 1.2 MG, BID
     Route: 048
     Dates: start: 20170303, end: 20170310
  24. UPTRAVI [Suspect]
     Active Substance: SELEXIPAG
     Dosage: 1.6 MG, BID
     Route: 048
     Dates: start: 20170324
  25. UPTRAVI [Suspect]
     Active Substance: SELEXIPAG
     Dosage: 1 MG, BID
     Route: 048
     Dates: start: 20171124, end: 20180111
  26. VENTAVIS [Concomitant]
     Active Substance: ILOPROST
     Dosage: 20 UNK, UNK
     Dates: start: 20180112, end: 20180113

REACTIONS (6)
  - White blood cell count decreased [Recovered/Resolved]
  - Heart rate increased [Recovered/Resolved]
  - Lumbosacral plexopathy [Recovering/Resolving]
  - Malaise [Recovering/Resolving]
  - Muscular weakness [Recovering/Resolving]
  - Hypoaesthesia [Recovering/Resolving]

NARRATIVE: CASE EVENT DATE: 20170217
